FAERS Safety Report 6059502-7 (Version None)
Quarter: 2009Q1

REPORT INFORMATION
  Report Type: 
  Country: None (occurrence: None)
  Receive Date: 20090127
  Receipt Date: 20090127
  Transmission Date: 20090719
  Serious: Yes (Life-Threatening)
  Sender: FDA-Public Use
  Company Number: None

PATIENT
  Age: 58 Year
  Sex: Female
  Weight: 65.7716 kg

DRUGS (4)
  1. CLINDAMYCIN HCL [Suspect]
     Indication: ANTIBIOTIC PROPHYLAXIS
     Dates: start: 20081231, end: 20081231
  2. CLINDAMYCIN HCL [Suspect]
     Indication: DENTAL CARE
     Dates: start: 20081231, end: 20081231
  3. CLINDAMYCIN HCL [Suspect]
     Indication: ANTIBIOTIC PROPHYLAXIS
     Dates: start: 20090107, end: 20090107
  4. CLINDAMYCIN HCL [Suspect]
     Indication: DENTAL CARE
     Dates: start: 20090107, end: 20090107

REACTIONS (3)
  - ABDOMINAL DISTENSION [None]
  - DIARRHOEA [None]
  - GASTROINTESTINAL PAIN [None]
